FAERS Safety Report 18525147 (Version 2)
Quarter: 2021Q1

REPORT INFORMATION
  Report Type: Spontaneous
  Country: JP (occurrence: JP)
  Receive Date: 20201119
  Receipt Date: 20210210
  Transmission Date: 20210419
  Serious: Yes (Death, Other)
  Sender: FDA-Public Use
  Company Number: JP-JAZZ-2020-JP-015230

PATIENT
  Age: 63 Year
  Sex: Female
  Weight: 41 kg

DRUGS (2)
  1. INOVAN [DOPAMINE HYDROCHLORIDE] [Concomitant]
     Indication: HYPOTENSION
     Dosage: UNK
     Dates: start: 20201023
  2. DEFITELIO [Suspect]
     Active Substance: DEFIBROTIDE SODIUM
     Indication: VENOOCCLUSIVE LIVER DISEASE
     Dosage: 25 MG/KG/DAY
     Route: 042
     Dates: start: 20201022, end: 20201023

REACTIONS (1)
  - Hypotension [Fatal]

NARRATIVE: CASE EVENT DATE: 20201023
